FAERS Safety Report 10282878 (Version 3)
Quarter: 2014Q4

REPORT INFORMATION
  Report Type: Spontaneous
  Country: US (occurrence: US)
  Receive Date: 20140708
  Receipt Date: 20141124
  Transmission Date: 20150528
  Serious: Yes (Other)
  Sender: FDA-Public Use
  Company Number: US-ABBVIE-14P-163-1254070-00

PATIENT
  Sex: Female

DRUGS (2)
  1. CREON [Suspect]
     Active Substance: PANCRELIPASE AMYLASE\PANCRELIPASE LIPASE\PANCRELIPASE PROTEASE
     Indication: PRODUCT USED FOR UNKNOWN INDICATION
     Dosage: ONE TO TWO CAPSULES
     Route: 065
  2. INSULIN [Concomitant]
     Active Substance: INSULIN NOS
     Indication: PRODUCT USED FOR UNKNOWN INDICATION

REACTIONS (13)
  - Pancreatic neoplasm [Unknown]
  - Hypophagia [Unknown]
  - Constipation [Unknown]
  - Fluid retention [Unknown]
  - Pain [Unknown]
  - Intestinal resection [Unknown]
  - Drug ineffective [Unknown]
  - Malaise [Unknown]
  - Post procedural complication [Unknown]
  - Abdominal distension [Unknown]
  - Dyspepsia [Unknown]
  - Pancreatic enzymes abnormal [Unknown]
  - Blood glucose abnormal [Unknown]
